FAERS Safety Report 24693888 (Version 4)
Quarter: 2024Q4

REPORT INFORMATION
  Report Type: Report from Study
  Country: SE (occurrence: SE)
  Receive Date: 20241204
  Receipt Date: 20241224
  Transmission Date: 20250115
  Serious: Yes (Hospitalization, Other)
  Sender: ABBVIE
  Company Number: SE-ABBVIE-6029323

PATIENT
  Age: 76 Year
  Sex: Male
  Weight: 56 kg

DRUGS (2)
  1. CARBIDOPA\LEVODOPA [Suspect]
     Active Substance: CARBIDOPA\LEVODOPA
     Indication: Parkinson^s disease
     Dosage: THERAPY DURATION: GOES TO 16 HOURS
     Route: 050
     Dates: start: 20241028
  2. CARBIDOPA\LEVODOPA [Suspect]
     Active Substance: CARBIDOPA\LEVODOPA
     Dosage: CURRENT DOSAGES: MORNING DOSE: 12. CONTINUOUS DOSE: 2.9. EXTRA DOSE: 1.3. DRUG LAST DOSE: 2024
     Route: 050
     Dates: start: 2024

REACTIONS (14)
  - Chills [Recovered/Resolved]
  - Enteral nutrition [Recovered/Resolved]
  - Musculoskeletal stiffness [Recovered/Resolved]
  - Cholecystectomy [Unknown]
  - Device leakage [Unknown]
  - Pyrexia [Unknown]
  - Bile duct stent insertion [Not Recovered/Not Resolved]
  - Malaise [Unknown]
  - Pyrexia [Recovered/Resolved]
  - Intra-abdominal pressure increased [Unknown]
  - Gait disturbance [Recovered/Resolved]
  - Dyspnoea [Recovered/Resolved]
  - Device issue [Unknown]
  - Chills [Recovered/Resolved]

NARRATIVE: CASE EVENT DATE: 20240101
